FAERS Safety Report 9501074 (Version 1)
Quarter: 2013Q3

REPORT INFORMATION
  Report Type: Spontaneous
  Country: US (occurrence: US)
  Receive Date: 20130905
  Receipt Date: 20130905
  Transmission Date: 20140515
  Serious: Yes (Other)
  Sender: FDA-Public Use
  Company Number: US-PFIZER INC-2013255746

PATIENT
  Age: 80 Year
  Sex: Male
  Weight: 89.34 kg

DRUGS (1)
  1. TIKOSYN [Suspect]
     Indication: CARDIAC DISORDER
     Dosage: 500 UG, 2X/DAY

REACTIONS (1)
  - Neoplasm malignant [Not Recovered/Not Resolved]
